FAERS Safety Report 8972267 (Version 2)
Quarter: 2013Q1

REPORT INFORMATION
  Report Type: Spontaneous
  Country: US (occurrence: None)
  Receive Date: 20121211
  Receipt Date: 20130129
  Transmission Date: 20140127
  Serious: Yes (Hospitalization)
  Sender: FDA-Public Use
  Company Number: 2012-1487

PATIENT
  Age: 72 Year
  Sex: Female
  Weight: 53.52 kg

DRUGS (1)
  1. KYPROLIS [Suspect]
     Indication: PLASMA CELL MYELOMA
     Route: 042
     Dates: start: 20121009, end: 20121010

REACTIONS (6)
  - Dyspnoea [None]
  - Arthralgia [None]
  - Femoral neck fracture [None]
  - Pathological fracture [None]
  - Anaemia [None]
  - Thrombocytopenia [None]
